FAERS Safety Report 7658777-8 (Version None)
Quarter: 2011Q3

REPORT INFORMATION
  Report Type: 
  Country: None (occurrence: None)
  Receive Date: 20110805
  Receipt Date: 20110805
  Transmission Date: 20111222
  Serious: Yes (Hospitalization)
  Sender: FDA-Public Use
  Company Number: None

PATIENT
  Age: 76 Year
  Sex: Female
  Weight: 118 kg

DRUGS (5)
  1. CHOLECALCIFEROL [Concomitant]
     Route: 048
  2. WARFARIN SODIUM [Suspect]
     Indication: ATRIAL FIBRILLATION
     Dosage: UNKNOWN
     Route: 048
  3. VALASARTAN [Concomitant]
     Route: 048
  4. DOFETILIDE [Concomitant]
     Route: 048
  5. SIMVASTATIN [Concomitant]
     Route: 048

REACTIONS (5)
  - POST PROCEDURAL COMPLICATION [None]
  - CEREBELLAR HAEMORRHAGE [None]
  - RESPIRATORY FAILURE [None]
  - INTERNATIONAL NORMALISED RATIO INCREASED [None]
  - HYDROCEPHALUS [None]
